FAERS Safety Report 15149068 (Version 1)
Quarter: 2018Q3

REPORT INFORMATION
  Report Type: Spontaneous
  Country: DE (occurrence: DE)
  Receive Date: 20180716
  Receipt Date: 20180716
  Transmission Date: 20181010
  Serious: Yes (Life-Threatening, Hospitalization)
  Sender: FDA-Public Use
  Company Number: DE-MYLANLABS-2018M1051423

PATIENT
  Age: 24 Year
  Sex: Female

DRUGS (2)
  1. CITALOPRAM [Suspect]
     Active Substance: CITALOPRAM HYDROBROMIDE
     Indication: PRODUCT USED FOR UNKNOWN INDICATION
     Route: 065
  2. PIPAMPERONE [Suspect]
     Active Substance: PIPAMPERONE
     Indication: PRODUCT USED FOR UNKNOWN INDICATION
     Route: 065

REACTIONS (8)
  - Ventricular arrhythmia [Recovered/Resolved]
  - Suicide attempt [Recovering/Resolving]
  - Ventricular fibrillation [Recovered/Resolved]
  - Long QT syndrome [Recovered/Resolved]
  - Toxicity to various agents [Recovering/Resolving]
  - Metabolic disorder [Unknown]
  - Intentional overdose [Recovering/Resolving]
  - Seizure [Recovered/Resolved]
